FAERS Safety Report 5931663-7 (Version None)
Quarter: 2008Q4

REPORT INFORMATION
  Report Type: 
  Country: None (occurrence: None)
  Receive Date: 20081027
  Receipt Date: 20081017
  Transmission Date: 20090506
  Serious: Yes (Death, Hospitalization, Other)
  Sender: FDA-Public Use
  Company Number: FR-ELI_LILLY_AND_COMPANY-FR200808006007

PATIENT
  Age: 83 Year
  Sex: Male
  Weight: 88 kg

DRUGS (13)
  1. ALIMTA [Suspect]
     Indication: PLEURAL MESOTHELIOMA
     Dosage: 975 MG (500 MG/M2, D1=D21), UNKNOWN
     Route: 042
     Dates: start: 20080814, end: 20080814
  2. CARBOPLATIN [Concomitant]
     Indication: PLEURAL MESOTHELIOMA
     Dosage: 470 MG, UNKNOWN
     Route: 042
     Dates: start: 20080814, end: 20080814
  3. SPECIAFOLDINE [Concomitant]
     Indication: VITAMIN SUPPLEMENTATION
     Dosage: UNK, UNKNOWN
     Route: 065
  4. VITAMIN B-12 [Concomitant]
     Indication: VITAMIN SUPPLEMENTATION
     Dosage: UNK, UNKNOWN
     Route: 065
  5. CORTICOSTEROIDS [Concomitant]
     Indication: PROPHYLAXIS
     Dosage: UNK, UNKNOWN
     Route: 065
  6. ZESTORETIC [Concomitant]
     Indication: HYPERTENSION
     Dosage: 1 D/F, DAILY (1/D)
     Route: 048
  7. TOPALGIC [Concomitant]
     Indication: PAIN
     Dosage: 1 D/F, DAILY (1/D)
     Route: 048
  8. OMEPRAZOLE [Concomitant]
     Indication: REFLUX GASTRITIS
     Dosage: 20 MG, DAILY (1/D)
     Route: 048
  9. GAVISCON                                /GFR/ [Concomitant]
     Indication: REFLUX GASTRITIS
     Dosage: UNK, 3/D
     Route: 048
     Dates: start: 20080707
  10. IXPRIM [Concomitant]
     Indication: PAIN
     Dosage: UNK, 2/D
     Route: 048
     Dates: start: 20080707
  11. LASIX [Concomitant]
     Indication: HYPERTENSION
     Dosage: 1 D/F, DAILY (1/D)
     Route: 048
     Dates: start: 20080707
  12. DIFFU K [Concomitant]
     Indication: HYPERTENSION
     Dosage: UNK, 2/D
     Route: 048
  13. VECTARION [Concomitant]
     Indication: SLEEP APNOEA SYNDROME
     Dosage: 1 D/F, DAILY (1/D)
     Route: 048
     Dates: start: 20080707

REACTIONS (6)
  - CARDIOGENIC SHOCK [None]
  - HYPERCREATININAEMIA [None]
  - NEUTROPENIA [None]
  - PANCYTOPENIA [None]
  - SEPTIC SHOCK [None]
  - THROMBOCYTOPENIA [None]
